FAERS Safety Report 18467375 (Version 2)
Quarter: 2020Q4

REPORT INFORMATION
  Report Type: Report from Study
  Country: US (occurrence: US)
  Receive Date: 20201105
  Receipt Date: 20201111
  Transmission Date: 20210114
  Serious: Yes (Other)
  Sender: FDA-Public Use
  Company Number: US-PFIZER INC-2020421415

PATIENT
  Age: 27 Year
  Sex: Male

DRUGS (3)
  1. MEPERIDINE HCL [Suspect]
     Active Substance: MEPERIDINE HYDROCHLORIDE
     Dosage: 75-100MG Q1H (TOTAL: 2.0G)
     Route: 042
  2. FOLATE [Concomitant]
     Active Substance: FOLATE SODIUM
     Dosage: 5 MG, 1X/DAY
  3. MEPERIDINE HCL [Suspect]
     Active Substance: MEPERIDINE HYDROCHLORIDE
     Indication: SICKLE CELL DISEASE
     Dosage: 100 MG (PM) (TOTAL: 1 G)
     Route: 042

REACTIONS (1)
  - Generalised tonic-clonic seizure [Recovered/Resolved]
